FAERS Safety Report 20523389 (Version 1)
Quarter: 2022Q1

REPORT INFORMATION
  Report Type: Spontaneous
  Country: None (occurrence: PT)
  Receive Date: 20220228
  Receipt Date: 20220228
  Transmission Date: 20220423
  Serious: Yes (Hospitalization)
  Sender: FDA-Public Use
  Company Number: PT-MLV Pharma LLC-2126257

PATIENT
  Age: 71 Year
  Sex: Female

DRUGS (1)
  1. ETODOLAC [Suspect]
     Active Substance: ETODOLAC
     Indication: Analgesic therapy

REACTIONS (3)
  - Dermatitis exfoliative generalised [Recovered/Resolved]
  - Lethargy [Recovered/Resolved]
  - Bradycardia [Recovered/Resolved]
